FAERS Safety Report 16069097 (Version 2)
Quarter: 2019Q1

REPORT INFORMATION
  Report Type: Report from Study
  Country: US (occurrence: US)
  Receive Date: 20190313
  Receipt Date: 20190326
  Transmission Date: 20190418
  Serious: Yes (Other)
  Sender: FDA-Public Use
  Company Number: US-JAZZ-2019-US-003127

PATIENT
  Sex: Female

DRUGS (16)
  1. XYREM [Suspect]
     Active Substance: SODIUM OXYBATE
     Indication: NARCOLEPSY
     Dosage: 1.5 G, BID
     Route: 048
     Dates: start: 20190225, end: 20190226
  2. ZYRTEC [Concomitant]
     Active Substance: CETIRIZINE HYDROCHLORIDE
  3. MEFENAMIC ACID. [Concomitant]
     Active Substance: MEFENAMIC ACID
  4. ADDERALL [Concomitant]
     Active Substance: AMPHETAMINE ASPARTATE\AMPHETAMINE SULFATE\DEXTROAMPHETAMINE SACCHARATE\DEXTROAMPHETAMINE SULFATE
  5. LAMOTRIGINE. [Concomitant]
     Active Substance: LAMOTRIGINE
  6. GABAPENTIN. [Concomitant]
     Active Substance: GABAPENTIN
  7. VITAMIN B12 [Concomitant]
     Active Substance: CYANOCOBALAMIN
  8. VITAMIN D3 [Concomitant]
     Active Substance: CHOLECALCIFEROL
  9. NUVIGIL [Concomitant]
     Active Substance: ARMODAFINIL
  10. ALEVE [Concomitant]
     Active Substance: NAPROXEN SODIUM
  11. PRISTIQ EXTENDED-RELEASE [Concomitant]
     Active Substance: DESVENLAFAXINE SUCCINATE
  12. AMPHETAMINE [Suspect]
     Active Substance: AMPHETAMINE
     Indication: PRODUCT USED FOR UNKNOWN INDICATION
  13. LORATADINE. [Concomitant]
     Active Substance: LORATADINE
  14. ONDANSETRON [Concomitant]
     Active Substance: ONDANSETRON
  15. DEPLIN [Concomitant]
     Active Substance: LEVOMEFOLATE CALCIUM
  16. FISH OIL CONCENTRATE [Concomitant]
     Active Substance: FISH OIL

REACTIONS (4)
  - Dehydration [Unknown]
  - Headache [Unknown]
  - Gastrointestinal bacterial infection [Unknown]
  - Feeling hot [Unknown]
